FAERS Safety Report 9727643 (Version 1)
Quarter: 2013Q4

REPORT INFORMATION
  Report Type: Report from Study
  Country: BR (occurrence: BR)
  Receive Date: 20131203
  Receipt Date: 20131203
  Transmission Date: 20140711
  Serious: Yes (Hospitalization, Other)
  Sender: FDA-Public Use
  Company Number: PHHY2013BR140737

PATIENT
  Sex: Female
  Weight: 78 kg

DRUGS (3)
  1. EXELON PATCH [Suspect]
     Indication: DEMENTIA ALZHEIMER^S TYPE
     Dosage: 9 MG, EVERY 24 HOURS
     Route: 062
  2. EXELON PATCH [Suspect]
     Dosage: 13.5 MG, EVERY 24 HOURS
     Route: 062
  3. AMITRIPTYLINE [Concomitant]
     Indication: ANTIDEPRESSANT THERAPY
     Dosage: UNK UKN, UNK

REACTIONS (2)
  - Pneumonia [Unknown]
  - Pruritus [Unknown]
